FAERS Safety Report 4355875-1 (Version None)
Quarter: 2004Q2

REPORT INFORMATION
  Report Type: 
  Country: None (occurrence: None)
  Receive Date: 20040507
  Receipt Date: 20040507
  Transmission Date: 20050107
  Serious: Yes (Life-Threatening)
  Sender: FDA-Public Use
  Company Number: None

PATIENT
  Age: 30 Year
  Sex: Female
  Weight: 83.4619 kg

DRUGS (1)
  1. DEPO-PROVERA [Suspect]

REACTIONS (1)
  - BREAST CANCER [None]
